FAERS Safety Report 8096867 (Version 4)
Quarter: 2014Q2

REPORT INFORMATION
  Report Type: Report from Study
  Country: US (occurrence: US)
  Receive Date: 20110818
  Receipt Date: 20140408
  Transmission Date: 20141212
  Serious: Yes (Other)
  Sender: FDA-Public Use
  Company Number: PHEH2011US00886

PATIENT
  Age: 57 Year
  Sex: Female
  Weight: 81.63 kg

DRUGS (20)
  1. GILENYA [Suspect]
     Indication: MULTIPLE SCLEROSIS
     Dosage: 0.5 MG, QD
     Route: 048
     Dates: start: 2010, end: 2010
  2. THYROID [Concomitant]
     Dosage: 90 MG, QD
  3. LITHIUM [Concomitant]
     Dosage: 300 MG, QD
  4. VALTREX [Concomitant]
     Dosage: 1000 MG, QD
  5. BACLOFEN [Concomitant]
     Dosage: 10 MG, PRN
  6. CYMBALTA [Concomitant]
     Dosage: 30 MG, QD
  7. VITAMIN D [Concomitant]
     Dosage: 50000 IU, ONCE IN WEEK
  8. GAMMAGARD [Concomitant]
     Dosage: 40 G, ONCE PER MONTH
  9. VALIUM [Concomitant]
     Dosage: UNK UKN, UNK
  10. FLEXERIL [Concomitant]
     Dosage: UNK UKN, UNK
  11. VITAMIN B12 [Concomitant]
     Dosage: UNK UKN, UNK
  12. MAGNESIUM [Concomitant]
     Dosage: UNK UKN, UNK
  13. LEVOTHYROXINE [Concomitant]
  14. NYSTATIN [Concomitant]
  15. IVIGLOB-EX [Concomitant]
  16. BOTOX [Concomitant]
  17. PROBIOTIC                          /07343501/ [Concomitant]
  18. FLAXSEED OIL [Concomitant]
  19. HYDROCODONE [Concomitant]
  20. AMOXICILLIN [Concomitant]

REACTIONS (10)
  - Fall [Unknown]
  - Movement disorder [Unknown]
  - Clonus [Unknown]
  - Muscular weakness [Unknown]
  - Acne [Unknown]
  - Fatigue [Unknown]
  - Somnolence [Unknown]
  - Paraesthesia [Unknown]
  - Asthenia [Recovered/Resolved with Sequelae]
  - Drug ineffective [Recovered/Resolved with Sequelae]
